FAERS Safety Report 7879415-5 (Version None)
Quarter: 2011Q4

REPORT INFORMATION
  Report Type: 
  Country: None (occurrence: None)
  Receive Date: 20111101
  Receipt Date: 20111026
  Transmission Date: 20120403
  Serious: Yes (Hospitalization)
  Sender: FDA-Public Use
  Company Number: GB-PFIZER INC-2011261949

PATIENT
  Age: 47 Year
  Sex: Male

DRUGS (5)
  1. SUTENT [Suspect]
     Indication: RENAL CELL CARCINOMA
     Dosage: 50 MG, 1X/DAY
     Route: 048
     Dates: end: 20110307
  2. MORPHINE [Concomitant]
     Dosage: 80 MG, 2X/DAY
     Route: 048
  3. OMEPRAZOLE [Concomitant]
     Dosage: 40 MG, 1X/DAY
     Route: 048
  4. PARACETAMOL [Concomitant]
     Dosage: 1 G, 4X/DAY
     Route: 048
  5. DIAZEPAM [Concomitant]
     Dosage: 5 MG, 3X/DAY
     Route: 048

REACTIONS (3)
  - SPLINTER HAEMORRHAGES [None]
  - NIGHT SWEATS [None]
  - MALAISE [None]
